FAERS Safety Report 6908188-5 (Version None)
Quarter: 2010Q3

REPORT INFORMATION
  Report Type: 
  Country: None (occurrence: None)
  Receive Date: 20100708
  Receipt Date: 20091015
  Transmission Date: 20110219
  Serious: Yes (Death, Other)
  Sender: FDA-Public Use
  Company Number: 2009157113

PATIENT
  Age: 30 Year
  Sex: Female

DRUGS (13)
  1. CHANTIX [Suspect]
     Indication: SMOKING CESSATION THERAPY
     Dosage: 1 MG, 2X/DAY, ORAL
     Route: 048
     Dates: start: 20070222, end: 20070403
  2. CYMBALTA [Concomitant]
  3. TOPAMAX [Concomitant]
  4. KLONOPIN [Concomitant]
  5. MIRAPEX [Concomitant]
  6. VESICARE [Concomitant]
  7. LEXAPRO [Concomitant]
  8. SEROQUEL [Concomitant]
  9. AZMACORT [Concomitant]
  10. MONTELUKAST SODIUM [Concomitant]
  11. PRILOSEC (OMEPRAZOLE) [Concomitant]
  12. ALBUTEROL [Concomitant]
  13. CLARITIN [Concomitant]

REACTIONS (7)
  - AGGRESSION [None]
  - COMPLETED SUICIDE [None]
  - DEPRESSION [None]
  - FATIGUE [None]
  - GALLBLADDER PAIN [None]
  - MOOD SWINGS [None]
  - TINEA VERSICOLOUR [None]
